FAERS Safety Report 11064332 (Version 2)
Quarter: 2015Q2

REPORT INFORMATION
  Report Type: Report from Study
  Country: US (occurrence: US)
  Receive Date: 20150424
  Receipt Date: 20150531
  Transmission Date: 20150821
  Serious: Yes (Death, Hospitalization, Other)
  Sender: FDA-Public Use
  Company Number: US-SA-2015SA052406

PATIENT
  Age: 12 Year
  Sex: Male
  Weight: 44 kg

DRUGS (14)
  1. FAMOTIDINE. [Concomitant]
     Active Substance: FAMOTIDINE
  2. KEPPRA [Concomitant]
     Active Substance: LEVETIRACETAM
  3. CEFEPIME [Concomitant]
     Active Substance: CEFEPIME\CEFEPIME HYDROCHLORIDE
  4. FLAGYL [Concomitant]
     Active Substance: METRONIDAZOLE\METRONIDAZOLE HYDROCHLORIDE
  5. VERSED [Concomitant]
     Active Substance: MIDAZOLAM HYDROCHLORIDE
  6. TOBRAMYCIN. [Concomitant]
     Active Substance: TOBRAMYCIN
  7. ATIVAN [Concomitant]
     Active Substance: LORAZEPAM
  8. HEPARIN [Concomitant]
     Active Substance: HEPARIN SODIUM
  9. LUMIZYME [Suspect]
     Active Substance: ALGLUCOSIDASE ALFA
     Indication: GLYCOGEN STORAGE DISEASE TYPE II
     Route: 041
     Dates: start: 20060601, end: 20150402
  10. CIPROFLOXACIN. [Concomitant]
     Active Substance: CIPROFLOXACIN
  11. EPINEPHRINE. [Concomitant]
     Active Substance: EPINEPHRINE
  12. LINEZOLID. [Concomitant]
     Active Substance: LINEZOLID
  13. PANTOPRAZOLE [Concomitant]
     Active Substance: PANTOPRAZOLE SODIUM
  14. DOPAMINE [Concomitant]
     Active Substance: DOPAMINE\DOPAMINE HYDROCHLORIDE

REACTIONS (5)
  - Pulmonary amyloidosis [Recovered/Resolved]
  - Respiratory failure [Unknown]
  - Oxygen saturation decreased [Unknown]
  - Septic shock [Fatal]
  - Sepsis [Recovered/Resolved]

NARRATIVE: CASE EVENT DATE: 2015
